FAERS Safety Report 9878433 (Version 1)
Quarter: 2014Q1

REPORT INFORMATION
  Report Type: Spontaneous
  Country: None (occurrence: US)
  Receive Date: 20140206
  Receipt Date: 20140206
  Transmission Date: 20141002
  Serious: No
  Sender: FDA-Public Use
  Company Number: US-ALLERGAN-1311334US

PATIENT
  Sex: Female

DRUGS (2)
  1. BOTOX COSMETIC [Suspect]
     Indication: SKIN WRINKLING
     Dosage: UNK
     Route: 030
     Dates: start: 20130524, end: 20130524
  2. BOTOX COSMETIC [Suspect]
     Dosage: UNK
     Route: 030

REACTIONS (5)
  - Eye swelling [Recovered/Resolved]
  - Eye swelling [Recovered/Resolved]
  - Skin swelling [Recovered/Resolved]
  - Skin swelling [Recovered/Resolved]
  - Pruritus [Recovered/Resolved]
